FAERS Safety Report 6844329-6 (Version None)
Quarter: 2010Q3

REPORT INFORMATION
  Report Type: 
  Country: None (occurrence: None)
  Receive Date: 20100715
  Receipt Date: 20100706
  Transmission Date: 20110219
  Serious: Yes (Hospitalization)
  Sender: FDA-Public Use
  Company Number: FR-ROCHE-714245

PATIENT
  Sex: Female
  Weight: 83 kg

DRUGS (5)
  1. BEVACIZUMAB [Suspect]
     Dosage: LAST DOSE PRIOR TO SAE:17 JUN 2010, CUMULATIVE DOSE:7375 MG
     Route: 065
     Dates: start: 20100303
  2. FLUOROURACIL [Suspect]
     Dosage: LAST DOSE PRIOR TO SAE: 04 MAY 2010, CUMULATIVE DOSE: 3880 MG
     Route: 065
     Dates: start: 20100303
  3. EPIRUBICIN [Suspect]
     Dosage: LAST DOSE PRIOR TO SAE: 04 MAY 2010, CUMULATIVE DOSE:780 MG
     Route: 042
     Dates: start: 20100303
  4. CYCLOPHOSPHAMIDE [Suspect]
     Dosage: CUMULATIVE DOSE: 3880 MG, LAST DOSE PRIOR TO SAE: 04 MAY 2010
     Route: 065
     Dates: start: 20100303
  5. TAXOTERE [Suspect]
     Dosage: CUMULATIVE DOSE: 390 MG, LAST DOSE PRIOR TO SAE: 17 JUN 2010
     Route: 065
     Dates: start: 20100525

REACTIONS (1)
  - MUCOSAL INFLAMMATION [None]
